FAERS Safety Report 4345889-X (Version None)
Quarter: 2004Q2

REPORT INFORMATION
  Report Type: 
  Country: None (occurrence: None)
  Receive Date: 20040423
  Receipt Date: 20040423
  Transmission Date: 20050107
  Serious: Yes (Hospitalization)
  Sender: FDA-Public Use
  Company Number: None

PATIENT
  Age: 35 Year
  Sex: Male
  Weight: 80.2867 kg

DRUGS (3)
  1. PENICILLAMINE [Suspect]
     Indication: BLOOD MERCURY ABNORMAL
     Dosage: 4X PR DAY 2X PER WEEK ORAL
     Route: 048
     Dates: start: 20030701, end: 20030731
  2. AMOXICILLAN [Concomitant]
  3. MALARONE [Concomitant]

REACTIONS (1)
  - NEUROPATHIC ARTHROPATHY [None]
